FAERS Safety Report 16761321 (Version 1)
Quarter: 2019Q3

REPORT INFORMATION
  Report Type: Spontaneous
  Country: US (occurrence: US)
  Receive Date: 20190830
  Receipt Date: 20190830
  Transmission Date: 20191005
  Serious: Yes (Other)
  Sender: FDA-Public Use
  Company Number: US-BAUSCH-BL-2019-024280

PATIENT
  Age: 26 Year
  Sex: Female

DRUGS (4)
  1. ATIVAN [Suspect]
     Active Substance: LORAZEPAM
     Indication: PRODUCT USED FOR UNKNOWN INDICATION
     Route: 065
  2. LATUDA [Suspect]
     Active Substance: LURASIDONE HYDROCHLORIDE
     Dosage: A COUPLE OF MONTHS AGO FROM DATE OF REPORT; UNDERDOSE
     Route: 048
     Dates: start: 2019, end: 2019
  3. TRAZODONE [Suspect]
     Active Substance: TRAZODONE HYDROCHLORIDE
     Indication: PRODUCT USED FOR UNKNOWN INDICATION
     Route: 065
  4. LATUDA [Suspect]
     Active Substance: LURASIDONE HYDROCHLORIDE
     Indication: BIPOLAR DISORDER
     Dosage: ABOUT A YEAR AND A HALF AGO FROM DATE OF REPORT
     Route: 048

REACTIONS (3)
  - Angina pectoris [Recovered/Resolved]
  - Heart rate irregular [Unknown]
  - Underdose [Unknown]

NARRATIVE: CASE EVENT DATE: 2019
